FAERS Safety Report 7170273-3 (Version None)
Quarter: 2010Q4

REPORT INFORMATION
  Report Type: 
  Country: None (occurrence: None)
  Receive Date: 20101217
  Receipt Date: 20101214
  Transmission Date: 20110411
  Serious: Yes (Hospitalization)
  Sender: FDA-Public Use
  Company Number: SE-PFIZER INC-2010171195

PATIENT
  Age: 55 Year
  Sex: Male

DRUGS (6)
  1. VIAGRA [Suspect]
     Dosage: 50 MG, 1X/DAY
     Route: 048
     Dates: start: 20100728, end: 20100728
  2. WARAN [Suspect]
     Dosage: UNK
     Route: 048
     Dates: start: 20100301, end: 20100728
  3. WARAN [Suspect]
     Dosage: UNK
     Route: 048
     Dates: start: 20101005
  4. ENALAPRIL [Concomitant]
     Dosage: UNK
  5. SIMVASTATIN [Concomitant]
     Dosage: UNK
  6. SELOKEN ZOC [Concomitant]
     Dosage: UNK

REACTIONS (2)
  - AORTIC STENOSIS [None]
  - SUBDURAL HAEMORRHAGE [None]
